FAERS Safety Report 7806957-0 (Version None)
Quarter: 2011Q4

REPORT INFORMATION
  Report Type: 
  Country: None (occurrence: None)
  Receive Date: 20111011
  Receipt Date: 20111007
  Transmission Date: 20120403
  Serious: Yes (Death, Hospitalization)
  Sender: FDA-Public Use
  Company Number: JP-BAYER-2011-050737

PATIENT
  Age: 78 Year
  Sex: Female
  Weight: 56 kg

DRUGS (6)
  1. SORAFENIB (RAF KINASE INHIBITOR) [Suspect]
     Indication: HEPATIC NEOPLASM MALIGNANT
     Dosage: DAILY DOSE 400 MG
     Route: 048
     Dates: start: 20101108, end: 20110405
  2. AMLODIPINE [Concomitant]
     Dosage: DAILY DOSE 5 MG
     Route: 048
  3. KERATINAMIN [Concomitant]
     Dosage: UNK
     Route: 061
     Dates: start: 20101108
  4. MIRIPLATIN [Concomitant]
     Indication: THERAPEUTIC EMBOLISATION
     Dosage: DAILY DOSE 58 MG
     Route: 042
     Dates: start: 20110609, end: 20110609
  5. HACHIMIJIO-GAN [Concomitant]
     Dosage: DAILY DOSE 4 G
     Route: 048
     Dates: start: 20101108
  6. SORAFENIB (RAF KINASE INHIBITOR) [Suspect]
     Dosage: 200 MG QD
     Dates: start: 20110801, end: 20110815

REACTIONS (7)
  - RASH [None]
  - PALMAR-PLANTAR ERYTHRODYSAESTHESIA SYNDROME [None]
  - ALOPECIA [None]
  - GASTROINTESTINAL HAEMORRHAGE [None]
  - PANCYTOPENIA [None]
  - SEPSIS [None]
  - DIARRHOEA [None]
